FAERS Safety Report 20658837 (Version 1)
Quarter: 2022Q1

REPORT INFORMATION
  Report Type: Spontaneous
  Country: US (occurrence: None)
  Receive Date: 20220331
  Receipt Date: 20220331
  Transmission Date: 20220423
  Serious: Yes (Hospitalization)
  Sender: FDA-Public Use
  Company Number: None

PATIENT
  Age: 74 Year
  Sex: Female
  Weight: 170.1 kg

DRUGS (12)
  1. IBRANCE [Suspect]
     Active Substance: PALBOCICLIB
     Indication: Breast cancer
     Dosage: OTHER FREQUENCY : 21D ON 7D OFF;?
     Route: 048
  2. ALBUTEROL [Suspect]
     Active Substance: ALBUTEROL
  3. FASLODEX [Suspect]
     Active Substance: FULVESTRANT
  4. GABAPENTIN [Suspect]
     Active Substance: GABAPENTIN
  5. IMODIUM [Suspect]
     Active Substance: LOPERAMIDE HYDROCHLORIDE
  6. IPRATROPIUM [Suspect]
     Active Substance: IPRATROPIUM
  7. LOSARTAN [Suspect]
     Active Substance: LOSARTAN
  8. MUCINEX [Suspect]
     Active Substance: GUAIFENESIN
  9. PERCOCET [Suspect]
     Active Substance: ACETAMINOPHEN\OXYCODONE HYDROCHLORIDE
  10. SYMBICORT [Suspect]
     Active Substance: BUDESONIDE\FORMOTEROL FUMARATE DIHYDRATE
  11. VITAMIN D3 [Suspect]
     Active Substance: CHOLECALCIFEROL
  12. WARFARIN [Suspect]
     Active Substance: WARFARIN

REACTIONS (2)
  - Diverticulum [None]
  - Thrombosis [None]

NARRATIVE: CASE EVENT DATE: 20220315
